FAERS Safety Report 7229955-7 (Version None)
Quarter: 2011Q1

REPORT INFORMATION
  Report Type: 
  Country: None (occurrence: None)
  Receive Date: 20110117
  Receipt Date: 20110110
  Transmission Date: 20110831
  Serious: Yes (Other)
  Sender: FDA-Public Use
  Company Number: US-ELI_LILLY_AND_COMPANY-US201101002800

PATIENT
  Sex: Male

DRUGS (2)
  1. LANTUS [Concomitant]
  2. HUMALOG [Suspect]
     Indication: DIABETES MELLITUS
     Dosage: UNK, 3/D

REACTIONS (7)
  - OCULAR MYASTHENIA [None]
  - INCORRECT DOSE ADMINISTERED [None]
  - BLINDNESS UNILATERAL [None]
  - VISUAL IMPAIRMENT [None]
  - EYE HAEMORRHAGE [None]
  - EYE DISORDER [None]
  - DIPLOPIA [None]
